FAERS Safety Report 19310023 (Version 3)
Quarter: 2021Q2

REPORT INFORMATION
  Report Type: Spontaneous
  Country: US (occurrence: US)
  Receive Date: 20210526
  Receipt Date: 20210601
  Transmission Date: 20210717
  Serious: No
  Sender: FDA-Public Use
  Company Number: US-HORIZON THERAPEUTICS-HZN-2021-002614

PATIENT

DRUGS (1)
  1. TEPEZZA [Suspect]
     Active Substance: TEPROTUMUMAB-TRBW
     Indication: ENDOCRINE OPHTHALMOPATHY
     Dosage: UNK (FIRST INFUSION)
     Route: 065
     Dates: start: 20210510

REACTIONS (3)
  - Muscle spasms [Unknown]
  - Urinary tract infection [Unknown]
  - Haematochezia [Unknown]

NARRATIVE: CASE EVENT DATE: 202105
